FAERS Safety Report 7820742-5 (Version None)
Quarter: 2011Q4

REPORT INFORMATION
  Report Type: 
  Country: None (occurrence: None)
  Receive Date: 20111018
  Receipt Date: 20111012
  Transmission Date: 20120403
  Serious: Yes (Hospitalization)
  Sender: FDA-Public Use
  Company Number: IT-BRISTOL-MYERS SQUIBB COMPANY-16162349

PATIENT
  Age: 73 Year
  Sex: Female

DRUGS (2)
  1. COUMADIN [Suspect]
     Dosage: 1 UNIT/DAY, INTER ON:  07OCT2011
     Route: 048
     Dates: start: 20110101
  2. ASPIRIN [Suspect]
     Dosage: 1 DF: 1 UNIT/DAY.INTER ON:  07OCT2011
     Dates: start: 20110101

REACTIONS (2)
  - GASTROINTESTINAL HAEMORRHAGE [None]
  - DIEULAFOY'S VASCULAR MALFORMATION [None]
